FAERS Safety Report 19956298 (Version 1)
Quarter: 2021Q4

REPORT INFORMATION
  Report Type: Spontaneous
  Country: US (occurrence: IN)
  Receive Date: 20211014
  Receipt Date: 20211014
  Transmission Date: 20220303
  Serious: No
  Sender: FDA-Public Use
  Company Number: US-EISAI MEDICAL RESEARCH-EC-2021-100717

PATIENT
  Age: 35 Year
  Sex: Female

DRUGS (2)
  1. HALAVEN [Suspect]
     Active Substance: ERIBULIN MESYLATE
     Indication: Breast cancer metastatic
     Dosage: DOSE AND FREQUENCY NOT PROVIDED
     Route: 041
     Dates: start: 202011, end: 202101
  2. ZOLEDRONIC ACID [Suspect]
     Active Substance: ZOLEDRONIC ACID
     Indication: Breast cancer metastatic
     Dosage: DOSE AND FREQUENCY NOT PROVIDED
     Dates: start: 202011, end: 202101

REACTIONS (1)
  - Malignant neoplasm progression [Unknown]
